FAERS Safety Report 12763093 (Version 1)
Quarter: 2016Q3

REPORT INFORMATION
  Report Type: Spontaneous
  Country: PT (occurrence: PT)
  Receive Date: 20160920
  Receipt Date: 20160920
  Transmission Date: 20161109
  Serious: Yes (Other)
  Sender: FDA-Public Use
  Company Number: PT-009507513-1607PRT006491

PATIENT
  Age: 71 Year
  Sex: Female

DRUGS (4)
  1. COPEGUS [Suspect]
     Active Substance: RIBAVIRIN
     Indication: CHRONIC HEPATITIS C
     Dosage: 3 COMPRIMIDOS AO ALMO?O + 2 COMPRIMIDOS AO JANTAR
     Route: 048
     Dates: start: 20160312
  2. HARVONI [Suspect]
     Active Substance: LEDIPASVIR\SOFOSBUVIR
     Indication: CHRONIC HEPATITIS C
     Dosage: 1 DF (90 MG + 400 MG), QD
     Route: 048
     Dates: start: 20160212
  3. REBETOL [Suspect]
     Active Substance: RIBAVIRIN
     Indication: CHRONIC HEPATITIS C
     Dosage: 200 MG, 5 TIMES PER DAY,
     Route: 048
     Dates: start: 20160212, end: 20160311
  4. CONCOR [Concomitant]
     Active Substance: BISOPROLOL FUMARATE
     Indication: HYPERTENSION
     Dosage: 10 MG, UNK
     Route: 048

REACTIONS (7)
  - Insomnia [Unknown]
  - Diarrhoea [Unknown]
  - Localised oedema [Unknown]
  - Oedema peripheral [Unknown]
  - Flatulence [Unknown]
  - Melaena [Recovered/Resolved]
  - Rectal discharge [Unknown]

NARRATIVE: CASE EVENT DATE: 20160219
